FAERS Safety Report 5907891-3 (Version None)
Quarter: 2008Q4

REPORT INFORMATION
  Report Type: 
  Country: None (occurrence: None)
  Receive Date: 20081003
  Receipt Date: 20080923
  Transmission Date: 20090506
  Serious: Yes (Other)
  Sender: FDA-Public Use
  Company Number: US-PFIZER INC-2008063855

PATIENT
  Sex: Female
  Weight: 59 kg

DRUGS (4)
  1. CHANTIX [Suspect]
     Indication: SMOKING CESSATION THERAPY
     Route: 048
     Dates: start: 20080717, end: 20080724
  2. HALDOL [Concomitant]
     Indication: BIPOLAR DISORDER
     Route: 048
  3. CYMBALTA [Concomitant]
     Indication: BIPOLAR DISORDER
     Route: 048
  4. WELLBUTRIN [Concomitant]
     Route: 048

REACTIONS (3)
  - DEPRESSION [None]
  - MYDRIASIS [None]
  - PSYCHOTIC BEHAVIOUR [None]
